FAERS Safety Report 7765574-1 (Version None)
Quarter: 2011Q3

REPORT INFORMATION
  Report Type: 
  Country: None (occurrence: None)
  Receive Date: 20110921
  Receipt Date: 20110912
  Transmission Date: 20111222
  Serious: Yes (Life-Threatening, Hospitalization)
  Sender: FDA-Public Use
  Company Number: US-BAYER-200929097NA

PATIENT
  Age: 21 Year
  Sex: Female
  Weight: 99.773 kg

DRUGS (5)
  1. LUPRON [Concomitant]
     Indication: ENDOMETRIOSIS
     Dosage: UNK
     Dates: start: 20040301, end: 20040801
  2. SEASONALE [Concomitant]
     Indication: ENDOMETRIOSIS
     Dosage: UNK
     Dates: start: 20040901, end: 20041201
  3. YASMIN [Suspect]
     Indication: ENDOMETRIOSIS
  4. YASMIN [Suspect]
     Indication: MENORRHAGIA
     Dosage: UNK
     Route: 048
     Dates: start: 20020301, end: 20050201
  5. IBUPROFEN [Concomitant]

REACTIONS (5)
  - PULMONARY EMBOLISM [None]
  - PAIN [None]
  - DEEP VEIN THROMBOSIS [None]
  - THROMBOPHLEBITIS [None]
  - THROMBOSIS [None]
